FAERS Safety Report 5392314-6 (Version None)
Quarter: 2007Q3

REPORT INFORMATION
  Report Type: 
  Country: None (occurrence: None)
  Receive Date: 20070720
  Receipt Date: 20070718
  Transmission Date: 20080115
  Serious: Yes (Disabling, Other)
  Sender: FDA-Public Use
  Company Number: US-BRISTOL-MYERS SQUIBB COMPANY-13849922

PATIENT
  Sex: Male
  Weight: 63 kg

DRUGS (6)
  1. CYTOXAN [Suspect]
  2. PRILOSEC [Concomitant]
  3. ZANTAC 150 [Concomitant]
  4. ASMANEX TWISTHALER [Concomitant]
  5. PULMICORT [Concomitant]
  6. ADVAIR DISKUS 100/50 [Concomitant]

REACTIONS (4)
  - ALLERGIC GRANULOMATOUS ANGIITIS [None]
  - GASTROOESOPHAGEAL REFLUX DISEASE [None]
  - PNEUMOTHORAX [None]
  - TOOTH LOSS [None]
